FAERS Safety Report 7138412-8 (Version None)
Quarter: 2010Q4

REPORT INFORMATION
  Report Type: 
  Country: None (occurrence: None)
  Receive Date: 20101206
  Receipt Date: 20101122
  Transmission Date: 20110411
  Serious: Yes (Hospitalization, Other)
  Sender: FDA-Public Use
  Company Number: US-ELI_LILLY_AND_COMPANY-US201011006430

PATIENT
  Sex: Female

DRUGS (2)
  1. PEMETREXED [Suspect]
     Indication: NON-SMALL CELL LUNG CANCER
  2. OTHER PHARMA COMPANY INV DRUG [Suspect]
     Indication: NON-SMALL CELL LUNG CANCER
     Dosage: UNK, 2 IN 21 DAYS
     Route: 042

REACTIONS (3)
  - DEHYDRATION [None]
  - MUCOSAL INFLAMMATION [None]
  - PULMONARY EMBOLISM [None]
